FAERS Safety Report 23330834 (Version 1)
Quarter: 2023Q4

REPORT INFORMATION
  Report Type: Spontaneous
  Country: US (occurrence: None)
  Receive Date: 20231221
  Receipt Date: 20231221
  Transmission Date: 20240110
  Serious: Yes (Other)
  Sender: FDA-Public Use
  Company Number: None

PATIENT
  Age: 71 Year
  Sex: Male
  Weight: 73.94 kg

DRUGS (3)
  1. TIMOLOL MALEATE [Suspect]
     Active Substance: TIMOLOL MALEATE
     Indication: Ophthalmological examination
     Dosage: FREQUENCY : TWICE A DAY;?
     Route: 061
     Dates: start: 20231220, end: 20231221
  2. BRIMONIDINE [Suspect]
     Active Substance: BRIMONIDINE TARTRATE
  3. DORZOLAMIDE [Suspect]
     Active Substance: DORZOLAMIDE

REACTIONS (4)
  - Eye irritation [None]
  - Eye swelling [None]
  - Eye inflammation [None]
  - Eyelid margin crusting [None]

NARRATIVE: CASE EVENT DATE: 20231220
